FAERS Safety Report 8342651-8 (Version None)
Quarter: 2012Q2

REPORT INFORMATION
  Report Type: 
  Country: None (occurrence: None)
  Receive Date: 20120508
  Receipt Date: 20100216
  Transmission Date: 20120825
  Serious: No
  Sender: FDA-Public Use
  Company Number: 2009BI038064

PATIENT
  Sex: Female

DRUGS (2)
  1. TYSABRI [Suspect]
     Route: 042
     Dates: start: 20100402
  2. TYSABRI [Suspect]
     Indication: MULTIPLE SCLEROSIS
     Route: 042
     Dates: start: 20070608, end: 20091014

REACTIONS (9)
  - OEDEMA PERIPHERAL [None]
  - SKIN TIGHTNESS [None]
  - MUSCLE TIGHTNESS [None]
  - PAIN IN EXTREMITY [None]
  - URINARY TRACT INFECTION [None]
  - STAPHYLOCOCCAL INFECTION [None]
  - RASH MACULAR [None]
  - DRUG INTOLERANCE [None]
  - CYSTITIS [None]
